FAERS Safety Report 5159893-5 (Version None)
Quarter: 2006Q4

REPORT INFORMATION
  Report Type: 
  Country: None (occurrence: None)
  Receive Date: 20061129
  Receipt Date: 20060417
  Transmission Date: 20070319
  Serious: No
  Sender: FDA-Public Use
  Company Number: US-GLAXOSMITHKLINE-A0601943A

PATIENT

DRUGS (2)
  1. WELLBUTRIN SR [Suspect]
     Indication: DEPRESSION
     Route: 048
  2. DIURETIC [Concomitant]

REACTIONS (3)
  - FLUID RETENTION [None]
  - OEDEMA [None]
  - URINE OUTPUT DECREASED [None]
